FAERS Safety Report 5763176-X (Version None)
Quarter: 2008Q2

REPORT INFORMATION
  Report Type: 
  Country: None (occurrence: None)
  Receive Date: 20080609
  Receipt Date: 20080531
  Transmission Date: 20081010
  Serious: Yes (Hospitalization)
  Sender: FDA-Public Use
  Company Number: PFIZER INC-2008045995

PATIENT
  Age: 46 Year
  Sex: Male
  Weight: 145 kg

DRUGS (8)
  1. NORVASC [Suspect]
  2. BLINDED SU11248 (SU011248) [Suspect]
     Indication: RENAL CELL CARCINOMA
     Route: 048
  3. HYDROCHLOROTHIAZIDE [Suspect]
  4. LISINOPRIL [Suspect]
  5. LEXAPRO [Concomitant]
  6. PRILOSEC [Concomitant]
  7. XANAX [Concomitant]
  8. ZOFRAN [Concomitant]

REACTIONS (1)
  - RENAL FAILURE [None]
